FAERS Safety Report 9525557 (Version 1)
Quarter: 2013Q3

REPORT INFORMATION
  Report Type: Spontaneous
  Country: US (occurrence: None)
  Receive Date: 20130913
  Receipt Date: 20130913
  Transmission Date: 20140515
  Serious: Yes (Other)
  Sender: FDA-Public Use
  Company Number: None

PATIENT
  Age: 23 Year
  Sex: Female
  Weight: 53.6 kg

DRUGS (1)
  1. LEVOFLOXACIN, 500 MG [Suspect]
     Indication: PNEUMONIA
     Route: 048
     Dates: start: 20130714, end: 20130718

REACTIONS (3)
  - Paraesthesia [None]
  - Tendon rupture [None]
  - Rotator cuff syndrome [None]
